FAERS Safety Report 17615055 (Version 14)
Quarter: 2024Q3

REPORT INFORMATION
  Report Type: Spontaneous
  Country: US (occurrence: US)
  Receive Date: 20200402
  Receipt Date: 20240704
  Transmission Date: 20241016
  Serious: No
  Sender: PFIZER
  Company Number: US-PFIZER INC-2020136094

PATIENT
  Age: 85 Year
  Sex: Female

DRUGS (3)
  1. PREMARIN [Suspect]
     Active Substance: ESTROGENS, CONJUGATED
     Dosage: 0.3 MG, DAILY
     Route: 048
  2. PREMARIN [Suspect]
     Active Substance: ESTROGENS, CONJUGATED
     Dosage: 0.3 MG, 1X/DAY
     Route: 048
  3. PREMARIN [Suspect]
     Active Substance: ESTROGENS, CONJUGATED
     Dosage: ONE PILL (STRENGTH: 0.03MG) PER DAY

REACTIONS (6)
  - Illness [Unknown]
  - Migraine [Unknown]
  - Disturbance in attention [Unknown]
  - Headache [Unknown]
  - Hot flush [Unknown]
  - Product prescribing error [Unknown]
